FAERS Safety Report 7057268-5 (Version None)
Quarter: 2010Q4

REPORT INFORMATION
  Report Type: 
  Country: None (occurrence: None)
  Receive Date: 20101022
  Receipt Date: 20101013
  Transmission Date: 20110411
  Serious: Yes (Other)
  Sender: FDA-Public Use
  Company Number: US-JNJFOC-20100805456

PATIENT
  Sex: Female
  Weight: 78.47 kg

DRUGS (6)
  1. REMICADE [Suspect]
     Indication: COLITIS ULCERATIVE
     Route: 042
  2. REMICADE [Suspect]
     Route: 042
  3. PREDNISONE [Concomitant]
     Indication: COLITIS ULCERATIVE
  4. PROTONIX [Concomitant]
  5. BUMEX [Concomitant]
  6. PHENERGAN [Concomitant]

REACTIONS (2)
  - CHRONIC MYELOID LEUKAEMIA [None]
  - DRUG EXPOSURE DURING PREGNANCY [None]
